FAERS Safety Report 4365654-7 (Version None)
Quarter: 2004Q2

REPORT INFORMATION
  Report Type: 
  Country: None (occurrence: None)
  Receive Date: 20040521
  Receipt Date: 20040510
  Transmission Date: 20050107
  Serious: Yes (Hospitalization)
  Sender: FDA-Public Use
  Company Number: AU-JNJFOC-20040502667

PATIENT
  Age: 75 Year
  Sex: Male

DRUGS (2)
  1. TRAMADOL HCL [Suspect]
     Dosage: 200 MG, IN 1 DAY
     Dates: start: 20040311, end: 20040311
  2. INDOMETHACIN [Suspect]
     Dosage: 100 MG, IN 1 DAY
     Dates: start: 20030311, end: 20030311

REACTIONS (3)
  - HYPERHIDROSIS [None]
  - PERIORBITAL OEDEMA [None]
  - RASH [None]
